FAERS Safety Report 21752988 (Version 1)
Quarter: 2022Q4

REPORT INFORMATION
  Report Type: Report from Study
  Country: US (occurrence: US)
  Receive Date: 20221220
  Receipt Date: 20221220
  Transmission Date: 20230113
  Serious: Yes (Hospitalization)
  Sender: FDA-Public Use
  Company Number: US-INSMED, INC.-2022-01958-US

PATIENT
  Sex: Female

DRUGS (7)
  1. ARIKAYCE [Suspect]
     Active Substance: AMIKACIN
     Indication: Mycobacterium avium complex infection
     Dosage: 590 MILLIGRAM, QD
     Route: 055
     Dates: start: 20220608, end: 20221109
  2. AZITHROMYCIN [Concomitant]
     Active Substance: AZITHROMYCIN
     Indication: Mycobacterium avium complex infection
     Dosage: UNK, TIW
     Dates: end: 20220705
  3. AZITHROMYCIN [Concomitant]
     Active Substance: AZITHROMYCIN
     Dosage: UNK, QD
     Dates: start: 20220706
  4. ETHAMBUTOL [Concomitant]
     Active Substance: ETHAMBUTOL HYDROCHLORIDE
     Indication: Mycobacterium avium complex infection
     Dosage: UNK, TIW
     Dates: end: 20220705
  5. ETHAMBUTOL [Concomitant]
     Active Substance: ETHAMBUTOL HYDROCHLORIDE
     Dosage: UNK, QD
     Dates: start: 20220706
  6. RIFAMPIN [Concomitant]
     Active Substance: RIFAMPIN
     Indication: Mycobacterium avium complex infection
     Dosage: UNK, TIW
     Dates: end: 20220705
  7. RIFAMPIN [Concomitant]
     Active Substance: RIFAMPIN
     Dosage: UNK, QD
     Dates: start: 20220706

REACTIONS (8)
  - Decreased appetite [Unknown]
  - Weight decreased [Unknown]
  - Cough [Unknown]
  - Nausea [Unknown]
  - Dyspnoea [Unknown]
  - Oxygen therapy [Unknown]
  - Chest pain [Unknown]
  - Bronchoscopy [Unknown]

NARRATIVE: CASE EVENT DATE: 20220101
